FAERS Safety Report 10270274 (Version 1)
Quarter: 2014Q2

REPORT INFORMATION
  Report Type: Spontaneous
  Country: US (occurrence: None)
  Receive Date: 20140627
  Receipt Date: 20140627
  Transmission Date: 20141212
  Serious: Yes (Hospitalization)
  Sender: FDA-Public Use
  Company Number: None

PATIENT
  Age: 53 Year
  Sex: Female
  Weight: 73.48 kg

DRUGS (7)
  1. EXJADE 500 MG NOVARTIS [Suspect]
     Indication: SICKLE CELL ANAEMIA
     Route: 048
     Dates: start: 20120608
  2. CARAFATE [Concomitant]
  3. PRADAXA [Concomitant]
  4. FOLIC ACID [Concomitant]
  5. GABAPENTIN [Concomitant]
  6. AMBIEN [Concomitant]
  7. PROTONIX [Concomitant]

REACTIONS (1)
  - Investigation [None]
